FAERS Safety Report 13640461 (Version 5)
Quarter: 2017Q4

REPORT INFORMATION
  Report Type: Spontaneous
  Country: JP (occurrence: JP)
  Receive Date: 20170610
  Receipt Date: 20171208
  Transmission Date: 20180320
  Serious: Yes (Death, Other)
  Sender: FDA-Public Use
  Company Number: JP-009507513-1704JPN000390J

PATIENT
  Age: 74 Year
  Sex: Male
  Weight: 45 kg

DRUGS (8)
  1. URINMET [Concomitant]
     Active Substance: POTASSIUM CITRATE\SODIUM CITRATE
     Dosage: UNK
     Route: 048
  2. FEBURIC [Concomitant]
     Active Substance: FEBUXOSTAT
     Dosage: 10 MG, UNK
     Route: 065
  3. PREDNISOLONE. [Concomitant]
     Active Substance: PREDNISOLONE
     Dosage: 5 MG, UNK
     Route: 065
  4. LANSOPRAZOLE. [Concomitant]
     Active Substance: LANSOPRAZOLE
     Dosage: 15 MG, UNK
     Route: 065
  5. KEYTRUDA [Suspect]
     Active Substance: PEMBROLIZUMAB
     Indication: LUNG SQUAMOUS CELL CARCINOMA STAGE I
     Dosage: 200 MG, Q3W
     Route: 041
     Dates: start: 20170328, end: 20170418
  6. MAGMITT [Concomitant]
     Active Substance: MAGNESIUM OXIDE
     Dosage: 330 MICROGRAM, UNK
     Route: 048
  7. ETIZOLAM [Concomitant]
     Active Substance: ETIZOLAM
     Dosage: 0.5 MG, UNK
     Route: 065
  8. DECADRON [Concomitant]
     Active Substance: DEXAMETHASONE
     Indication: LUNG SQUAMOUS CELL CARCINOMA STAGE I
     Dosage: 0.5 MG, QD
     Route: 048
     Dates: end: 20170524

REACTIONS (4)
  - Malignant neoplasm progression [Fatal]
  - Cognitive disorder [Unknown]
  - Rash [Unknown]
  - Infection [Unknown]

NARRATIVE: CASE EVENT DATE: 2017
